FAERS Safety Report 21454116 (Version 1)
Quarter: 2022Q4

REPORT INFORMATION
  Report Type: Report from Study
  Country: US (occurrence: US)
  Receive Date: 20221013
  Receipt Date: 20221013
  Transmission Date: 20230112
  Serious: Yes (Hospitalization, Other)
  Sender: FDA-Public Use
  Company Number: US-GILEAD-2022-0600832

PATIENT
  Age: 35 Year
  Sex: Male

DRUGS (14)
  1. EMTRICITABINE\TENOFOVIR [Suspect]
     Active Substance: EMTRICITABINE\TENOFOVIR
     Indication: HIV infection
     Route: 065
  2. IBALIZUMAB [Suspect]
     Active Substance: IBALIZUMAB
     Indication: HIV infection
     Route: 065
  3. DARUNAVIR [Concomitant]
     Active Substance: DARUNAVIR
  4. DOLUTEGRAVIR [Concomitant]
     Active Substance: DOLUTEGRAVIR
  5. FUZEON [Concomitant]
     Active Substance: ENFUVIRTIDE
  6. HEPARIN [Concomitant]
     Active Substance: HEPARIN SODIUM
  7. LOPERAMIDE [Concomitant]
     Active Substance: LOPERAMIDE
  8. QUETIAPINE [Concomitant]
     Active Substance: QUETIAPINE
  9. ACETAMINOPHEN [Concomitant]
     Active Substance: ACETAMINOPHEN
  10. POTASSIUM CHLORIDE [Concomitant]
     Active Substance: POTASSIUM CHLORIDE
  11. BACTRIM [Concomitant]
     Active Substance: SULFAMETHOXAZOLE\TRIMETHOPRIM
  12. FAMOTIDINE [Concomitant]
     Active Substance: FAMOTIDINE
  13. VALGANCICLOVIR [Concomitant]
     Active Substance: VALGANCICLOVIR
  14. SYMTUZA [Concomitant]
     Active Substance: COBICISTAT\DARUNAVIR\EMTRICITABINE\TENOFOVIR ALAFENAMIDE

REACTIONS (1)
  - Opportunistic infection [Not Recovered/Not Resolved]
